FAERS Safety Report 25075643 (Version 1)
Quarter: 2025Q1

REPORT INFORMATION
  Report Type: Spontaneous
  Country: US (occurrence: None)
  Receive Date: 20250313
  Receipt Date: 20250313
  Transmission Date: 20250409
  Serious: No
  Sender: INCYTE
  Company Number: US-EVENT-001952

PATIENT

DRUGS (1)
  1. OPZELURA [Suspect]
     Active Substance: RUXOLITINIB PHOSPHATE
     Indication: Vitiligo
     Dosage: UNK, 2X DAILY APPLIED TO AFFECTED AREAS
     Route: 065

REACTIONS (3)
  - Product availability issue [Unknown]
  - Product distribution issue [Unknown]
  - Off label use [Unknown]
